FAERS Safety Report 8105760-4 (Version None)
Quarter: 2012Q1

REPORT INFORMATION
  Report Type: 
  Country: None (occurrence: None)
  Receive Date: 20120201
  Receipt Date: 20120123
  Transmission Date: 20120608
  Serious: Yes (Other)
  Sender: FDA-Public Use
  Company Number: CA-ASTRAZENECA-2012SE05542

PATIENT
  Age: 67 Year
  Sex: Female

DRUGS (8)
  1. MEDFORMIN [Concomitant]
     Route: 048
  2. RAN PANTOPRAZOLE [Concomitant]
     Route: 048
  3. CRESTOR [Suspect]
     Route: 048
     Dates: start: 20120104
  4. METOPROLOL TARTRATE [Concomitant]
     Route: 048
  5. MELOXICAM [Concomitant]
     Route: 048
  6. APO-EPLOATRIL [Concomitant]
     Route: 048
  7. AMILZIDE [Concomitant]
     Route: 048
  8. ACETAMINOPHEN [Concomitant]
     Dosage: OCCASIONALLY

REACTIONS (1)
  - BLOOD PRESSURE FLUCTUATION [None]
